FAERS Safety Report 18840052 (Version 1)
Quarter: 2021Q1

REPORT INFORMATION
  Report Type: Spontaneous
  Country: US (occurrence: US)
  Receive Date: 20210203
  Receipt Date: 20210203
  Transmission Date: 20210419
  Serious: Yes (Death, Other)
  Sender: FDA-Public Use
  Company Number: US-009507513-2102USA000345

PATIENT
  Age: 82 Year
  Sex: Male

DRUGS (2)
  1. KEYTRUDA [Suspect]
     Active Substance: PEMBROLIZUMAB
     Indication: ADRENAL MASS
  2. KEYTRUDA [Suspect]
     Active Substance: PEMBROLIZUMAB
     Indication: PULMONARY MASS
     Dosage: ROUTE OF ADMINISTRATION: THROUGH INFUSION
     Dates: start: 2020, end: 20201201

REACTIONS (8)
  - Oral candidiasis [Recovering/Resolving]
  - Fall [Unknown]
  - Wound [Unknown]
  - Delirium [Fatal]
  - Decreased appetite [Unknown]
  - Fall [Unknown]
  - Taste disorder [Unknown]
  - Confusional state [Not Recovered/Not Resolved]

NARRATIVE: CASE EVENT DATE: 202012
